FAERS Safety Report 6149130-7 (Version None)
Quarter: 2009Q2

REPORT INFORMATION
  Report Type: 
  Country: None (occurrence: None)
  Receive Date: 20090407
  Receipt Date: 20090324
  Transmission Date: 20091009
  Serious: Yes (Other)
  Sender: FDA-Public Use
  Company Number: 1000005590

PATIENT
  Age: 49 Year
  Sex: Male

DRUGS (3)
  1. MILNACIPRAN (MILNACIPRAN HYDROCHLORIDE) (TABLETS) [Suspect]
     Dosage: 100 MG (100 MG 1 IN 1 D),ORAL ; 150 MG (150 MG,1 IN 1 D),ORAL ; 100 MG (100 MG,1 IN 1 D),ORAL
     Route: 048
     Dates: start: 20080616, end: 20080902
  2. MILNACIPRAN (MILNACIPRAN HYDROCHLORIDE) (TABLETS) [Suspect]
     Dosage: 100 MG (100 MG 1 IN 1 D),ORAL ; 150 MG (150 MG,1 IN 1 D),ORAL ; 100 MG (100 MG,1 IN 1 D),ORAL
     Route: 048
     Dates: start: 20080903, end: 20081220
  3. MILNACIPRAN (MILNACIPRAN HYDROCHLORIDE) (TABLETS) [Suspect]
     Dosage: 100 MG (100 MG 1 IN 1 D),ORAL ; 150 MG (150 MG,1 IN 1 D),ORAL ; 100 MG (100 MG,1 IN 1 D),ORAL
     Route: 048
     Dates: start: 20081221, end: 20090107

REACTIONS (4)
  - DRUG ERUPTION [None]
  - LIP OEDEMA [None]
  - LYMPHADENOPATHY [None]
  - ORAL MUCOSAL ERUPTION [None]
